FAERS Safety Report 7677654-X (Version None)
Quarter: 2011Q3

REPORT INFORMATION
  Report Type: 
  Country: None (occurrence: None)
  Receive Date: 20110811
  Receipt Date: 20110801
  Transmission Date: 20111222
  Serious: Yes (Other)
  Sender: FDA-Public Use
  Company Number: PHHY2011US50763

PATIENT
  Sex: Male

DRUGS (6)
  1. CARBATROL [Concomitant]
     Indication: CONVULSION
     Dosage: 400 MG, UNK
     Route: 048
  2. LEVETIRACETAM [Concomitant]
     Indication: CONVULSION
     Dosage: 1000 MG, UNK
  3. LEVOTHYROXINE SODIUM [Concomitant]
     Indication: HYPOTHYROIDISM
     Dosage: 62.5 MG, UNK
     Route: 048
  4. POTASSIUM [Concomitant]
     Indication: HYPOPHOSPHATAEMIA
  5. EXJADE [Suspect]
     Indication: IRON OVERLOAD
     Dosage: 750 MG, QD
     Route: 048
     Dates: start: 20100922, end: 20110301
  6. EXJADE [Suspect]
     Dosage: 500 MG, DAILY
     Route: 048
     Dates: start: 20110330

REACTIONS (3)
  - GENERAL PHYSICAL HEALTH DETERIORATION [None]
  - RENAL DISORDER [None]
  - PROTEINURIA [None]
